FAERS Safety Report 5431471-X (Version None)
Quarter: 2007Q3

REPORT INFORMATION
  Report Type: 
  Country: None (occurrence: None)
  Receive Date: 20070830
  Receipt Date: 20070705
  Transmission Date: 20080115
  Serious: No
  Sender: FDA-Public Use
  Company Number: A0661915A

PATIENT
  Age: 61 Year
  Sex: Female

DRUGS (4)
  1. WELLBUTRIN XL [Suspect]
     Dosage: 150MG PER DAY
     Route: 048
     Dates: start: 20070613
  2. BYETTA [Concomitant]
  3. AVANDAMET [Concomitant]
  4. PAXIL CR [Concomitant]

REACTIONS (6)
  - DYSPHAGIA [None]
  - JOINT SWELLING [None]
  - LIP SWELLING [None]
  - PRURITUS [None]
  - RASH GENERALISED [None]
  - URTICARIA [None]
